FAERS Safety Report 5863907-4 (Version None)
Quarter: 2008Q3

REPORT INFORMATION
  Report Type: 
  Country: None (occurrence: None)
  Receive Date: 20080829
  Receipt Date: 20080822
  Transmission Date: 20090109
  Serious: Yes (Life-Threatening)
  Sender: FDA-Public Use
  Company Number: DE-BAYER-200825149GPV

PATIENT
  Age: 68 Year
  Sex: Female
  Weight: 53 kg

DRUGS (6)
  1. SORAFENIB [Suspect]
     Indication: ACUTE MYELOID LEUKAEMIA
     Dosage: TOTAL DAILY DOSE: 800 MG
     Route: 048
     Dates: start: 20060621, end: 20080707
  2. SORAFENIB [Suspect]
     Dosage: TOTAL DAILY DOSE: 400 MG
     Route: 048
     Dates: start: 20080708, end: 20080714
  3. CYTARABINE [Suspect]
     Indication: ACUTE MYELOID LEUKAEMIA
     Route: 042
     Dates: start: 20080611, end: 20080617
  4. DAUNORUBICIN HCL [Suspect]
     Indication: ACUTE MYELOID LEUKAEMIA
     Route: 042
     Dates: start: 20080613, end: 20080615
  5. AMBISOME [Concomitant]
     Indication: BRONCHOPULMONARY ASPERGILLOSIS
     Route: 042
     Dates: start: 20080711, end: 20080728
  6. VFEND [Concomitant]
     Indication: BRONCHOPULMONARY ASPERGILLOSIS
     Dosage: TOTAL DAILY DOSE: 400 MG
     Route: 048
     Dates: start: 20080729

REACTIONS (3)
  - LEFT VENTRICULAR FAILURE [None]
  - PULMONARY OEDEMA [None]
  - RESPIRATORY FAILURE [None]
